FAERS Safety Report 17833241 (Version 2)
Quarter: 2020Q2

REPORT INFORMATION
  Report Type: Spontaneous
  Country: JP (occurrence: JP)
  Receive Date: 20200528
  Receipt Date: 20200604
  Transmission Date: 20200714
  Serious: Yes (Hospitalization, Other)
  Sender: FDA-Public Use
  Company Number: JP-ACCORD-183152

PATIENT
  Age: 79 Year
  Sex: Female
  Weight: 26.5 kg

DRUGS (2)
  1. PREDNISOLONE. [Suspect]
     Active Substance: PREDNISOLONE
     Indication: RHEUMATOID ARTHRITIS
     Dosage: LONG-TERM TREATMENT
  2. TACROLIMUS. [Suspect]
     Active Substance: TACROLIMUS
     Indication: RHEUMATOID ARTHRITIS
     Dosage: LONG-TERM TREATMENT

REACTIONS (2)
  - Osteomyelitis [Recovering/Resolving]
  - Mycobacterium chelonae infection [Recovering/Resolving]
